FAERS Safety Report 7321900-9 (Version None)
Quarter: 2011Q1

REPORT INFORMATION
  Report Type: 
  Country: None (occurrence: None)
  Receive Date: 20110228
  Receipt Date: 20110216
  Transmission Date: 20110831
  Serious: Yes (Other)
  Sender: FDA-Public Use
  Company Number: US-ROCHE-735798

PATIENT
  Sex: Male
  Weight: 95.3 kg

DRUGS (3)
  1. ACCUTANE [Suspect]
     Route: 065
     Dates: end: 19880101
  2. BENADRYL [Concomitant]
  3. ACCUTANE [Suspect]
     Indication: ACNE
     Route: 065
     Dates: start: 19860101, end: 19871231

REACTIONS (8)
  - COLITIS ULCERATIVE [None]
  - DIVERTICULUM [None]
  - INFLAMMATORY BOWEL DISEASE [None]
  - HAEMORRHOIDS [None]
  - DIVERTICULITIS [None]
  - ABDOMINAL PAIN [None]
  - NAUSEA [None]
  - RECTAL HAEMORRHAGE [None]
